FAERS Safety Report 21389151 (Version 1)
Quarter: 2022Q3

REPORT INFORMATION
  Report Type: Spontaneous
  Country: ES (occurrence: ES)
  Receive Date: 20220929
  Receipt Date: 20220929
  Transmission Date: 20221027
  Serious: Yes (Hospitalization)
  Sender: FDA-Public Use
  Company Number: None

PATIENT
  Age: 84 Year
  Sex: Male

DRUGS (3)
  1. HYDROCHLOROTHIAZIDE\LOSARTAN [Suspect]
     Active Substance: HYDROCHLOROTHIAZIDE\LOSARTAN
     Indication: Hypertension
     Dosage: 1 DOSAGE FORMS DAILY; 1 TAB/DAY (1-0-0),LOSARTAN/HYDROCHLOROTHIAZIDE 100 MG/25 MG 28 TABLETS, DURATI
     Dates: start: 20220527, end: 20220906
  2. DOXAZOSIN [Suspect]
     Active Substance: DOXAZOSIN MESYLATE
     Indication: Hypertension
     Dosage: UNIT DOSE: 12 MG , FREQUENCY TIME : 24 HOURS, DURATION : 7 DAYS
     Dates: start: 20220831, end: 20220906
  3. DOXAZOSIN [Concomitant]
     Active Substance: DOXAZOSIN MESYLATE
     Indication: Hypertension
     Dosage: 8 MG, DOXAZOSINE (2387A), FREQUENCY TIME : 24 HOURS, DURATION : 89 DAYS
     Dates: start: 20220603, end: 20220830

REACTIONS (1)
  - Syncope [Recovered/Resolved]

NARRATIVE: CASE EVENT DATE: 20220905
